FAERS Safety Report 5782088-9 (Version None)
Quarter: 2008Q2

REPORT INFORMATION
  Report Type: 
  Country: None (occurrence: None)
  Receive Date: 20080623
  Receipt Date: 20080610
  Transmission Date: 20081010
  Serious: Yes (Hospitalization)
  Sender: FDA-Public Use
  Company Number: ES-ROCHE-570042

PATIENT
  Sex: Female

DRUGS (2)
  1. PEGASYS [Suspect]
     Dosage: FORMULATION REPORTED AS: PREFILLED SYRINGE
     Route: 058
     Dates: start: 20070601, end: 20080501
  2. ANGIOTENSIN CONVERTING ENZYME INHIBITOR [Suspect]
     Indication: HYPERTENSION
     Route: 065

REACTIONS (2)
  - EYE OEDEMA [None]
  - LYMPHOEDEMA [None]
